FAERS Safety Report 5678978-8 (Version None)
Quarter: 2008Q1

REPORT INFORMATION
  Report Type: 
  Country: None (occurrence: None)
  Receive Date: 20080321
  Receipt Date: 20080314
  Transmission Date: 20080703
  Serious: Yes (Hospitalization, Other)
  Sender: FDA-Public Use
  Company Number: 2007SP004218

PATIENT
  Age: 46 Year
  Sex: Female

DRUGS (3)
  1. PEG-INTRON [Suspect]
     Indication: HEPATITIS C
     Dosage: SC
     Route: 058
     Dates: start: 20061227, end: 20071124
  2. RIBAVIRIN [Suspect]
     Indication: HEPATITIS C
     Dosage: PO
     Route: 048
     Dates: start: 20061227, end: 20071124
  3. LEVOXYL [Concomitant]

REACTIONS (32)
  - ABDOMINAL DISCOMFORT [None]
  - ALANINE AMINOTRANSFERASE INCREASED [None]
  - ANAEMIA [None]
  - ANIMAL BITE [None]
  - BLOOD URIC ACID INCREASED [None]
  - CHEST PAIN [None]
  - CHOLELITHIASIS [None]
  - CRYING [None]
  - DEHYDRATION [None]
  - DEPRESSED MOOD [None]
  - DRUG INEFFECTIVE [None]
  - DRY MOUTH [None]
  - FLUID INTAKE REDUCED [None]
  - HEADACHE [None]
  - HEART RATE INCREASED [None]
  - HEPATIC ENZYME INCREASED [None]
  - HYPERTENSION [None]
  - IRRITABILITY [None]
  - LYMPHADENOPATHY [None]
  - MASS [None]
  - MOVEMENT DISORDER [None]
  - PLATELET COUNT DECREASED [None]
  - PRODUCTIVE COUGH [None]
  - PYREXIA [None]
  - RETINAL DETACHMENT [None]
  - SCAR [None]
  - SINUSITIS [None]
  - SLEEP DISORDER [None]
  - SPLENOMEGALY [None]
  - TOOTHACHE [None]
  - VOMITING [None]
  - WHITE BLOOD CELL COUNT DECREASED [None]
